FAERS Safety Report 5620500-6 (Version None)
Quarter: 2008Q1

REPORT INFORMATION
  Report Type: 
  Country: None (occurrence: None)
  Receive Date: 20080208
  Receipt Date: 20080204
  Transmission Date: 20080703
  Serious: Yes (Disabling)
  Sender: FDA-Public Use
  Company Number: US-BOEHRINGER INGELHEIM GMBH, GERMANY-2007-BP-25947RO

PATIENT
  Sex: Female
  Weight: 100 kg

DRUGS (11)
  1. MEGESTROL ACETATE [Suspect]
     Indication: ARRHYTHMIA
     Route: 048
     Dates: start: 20070925
  2. MEGESTROL ACETATE [Suspect]
     Indication: ASTHENIA
  3. MEGESTROL ACETATE [Suspect]
     Indication: FATIGUE
  4. LASIX [Concomitant]
     Indication: HYPERTENSION
  5. LASIX [Concomitant]
     Indication: OEDEMA PERIPHERAL
  6. ATENOLOL [Concomitant]
     Indication: ARRHYTHMIA
  7. AMLODIPINE [Concomitant]
     Indication: ARRHYTHMIA
  8. AMLODIPINE [Concomitant]
     Indication: BLOOD PRESSURE ABNORMAL
  9. ASPIRIN [Concomitant]
  10. ATENOLOL [Concomitant]
     Indication: ATRIAL FIBRILLATION
     Route: 048
  11. NORVASC [Concomitant]
     Indication: PULMONARY HYPERTENSION

REACTIONS (2)
  - HOT FLUSH [None]
  - HYPERHIDROSIS [None]
